FAERS Safety Report 9193251 (Version 1)
Quarter: 2013Q1

REPORT INFORMATION
  Report Type: Report from Study
  Country: JP (occurrence: JP)
  Receive Date: 20130327
  Receipt Date: 20130327
  Transmission Date: 20140127
  Serious: Yes (Other)
  Sender: FDA-Public Use
  Company Number: JP-CELGENEUS-087-21880-11080172

PATIENT
  Age: 76 Year
  Sex: Male

DRUGS (23)
  1. REVLIMID [Suspect]
     Indication: PLASMA CELL MYELOMA
     Dosage: 15 MILLIGRAM
     Route: 048
     Dates: start: 20110408, end: 20110421
  2. REVLIMID [Suspect]
     Dosage: 15 MILLIGRAM
     Route: 048
     Dates: start: 20110513, end: 20110526
  3. REVLIMID [Suspect]
     Dosage: 15 MILLIGRAM
     Route: 048
     Dates: start: 20110715, end: 20110728
  4. REVLIMID [Suspect]
     Dosage: 25 MILLIGRAM
     Route: 048
     Dates: start: 20101108, end: 20101128
  5. REVLIMID [Suspect]
     Dosage: 15 MILLIGRAM
     Route: 048
     Dates: start: 20110108, end: 20110121
  6. REVLIMID [Suspect]
     Dosage: 15 MILLIGRAM
     Route: 048
     Dates: start: 20110205, end: 20110218
  7. REVLIMID [Suspect]
     Dosage: 15 MILLIGRAM
     Route: 048
     Dates: start: 20110304, end: 20110317
  8. LENADEX [Suspect]
     Indication: PLASMA CELL MYELOMA
     Dosage: 16 MILLIGRAM
     Route: 048
     Dates: start: 20110408, end: 20110420
  9. LENADEX [Suspect]
     Dosage: 16 MILLIGRAM
     Route: 048
     Dates: start: 20110513, end: 20110728
  10. LENADEX [Suspect]
     Dosage: 32 MILLIGRAM
     Route: 048
     Dates: start: 20101108, end: 20101110
  11. LENADEX [Suspect]
     Dosage: 32 MILLIGRAM
     Route: 048
     Dates: start: 20101115, end: 20101117
  12. LENADEX [Suspect]
     Dosage: 32 MILLIGRAM
     Route: 048
     Dates: start: 20101122, end: 20101124
  13. LENADEX [Suspect]
     Dosage: 32 MILLIGRAM
     Route: 048
     Dates: start: 20110108, end: 20110110
  14. LENADEX [Suspect]
     Dosage: 32 MILLIGRAM
     Route: 048
     Dates: start: 20110115, end: 20110117
  15. LENADEX [Suspect]
     Dosage: 16 MILLIGRAM
     Route: 048
     Dates: start: 20110205, end: 20110207
  16. LENADEX [Suspect]
     Dosage: 16 MILLIGRAM
     Route: 048
     Dates: start: 20110212, end: 20110214
  17. LENADEX [Suspect]
     Dosage: 16 MILLIGRAM
     Route: 048
     Dates: start: 20110304, end: 20110306
  18. LENADEX [Suspect]
     Dosage: 16 MILLIGRAM
     Route: 048
     Dates: start: 20110311, end: 20110313
  19. MOHRUS TAPE [Concomitant]
     Indication: ILL-DEFINED DISORDER
     Dosage: 20 MILLIGRAM
     Route: 062
     Dates: start: 20110408, end: 20110421
  20. MOHRUS TAPE [Concomitant]
     Dosage: 20 MILLIGRAM
     Route: 062
     Dates: start: 20110513, end: 20110728
  21. DIDRONEL [Concomitant]
     Indication: ILL-DEFINED DISORDER
     Dosage: 200 MILLIGRAM
     Route: 048
     Dates: start: 20110408, end: 20110421
  22. ZYLORIC [Concomitant]
     Indication: DIABETES MELLITUS
     Dosage: 100 MILLIGRAM
     Route: 048
     Dates: start: 20110408, end: 20110421
  23. ZYLORIC [Concomitant]
     Dosage: 100 MILLIGRAM
     Route: 048
     Dates: start: 20110513, end: 20110728

REACTIONS (5)
  - Diabetes mellitus [Unknown]
  - Neutrophil count decreased [Recovered/Resolved]
  - Hypertension [Unknown]
  - Constipation [Unknown]
  - Back pain [Unknown]
